FAERS Safety Report 8027050 (Version 3)
Quarter: 2012Q4

REPORT INFORMATION
  Report Type: Report from Study
  Country: AU (occurrence: AU)
  Receive Date: 20110708
  Receipt Date: 20120907
  Transmission Date: 20130627
  Serious: Yes (Other)
  Sender: FDA-Public Use
  Company Number: PHHO2011AU11227

PATIENT
  Age: 39 None
  Sex: Male
  Weight: 65 kg

DRUGS (6)
  1. STI571 [Suspect]
     Indication: SCLERODERMA
     Dosage: 100 mg, daily
     Route: 048
     Dates: start: 201008
  2. NEUROTON [Concomitant]
  3. THIAMINE [Concomitant]
  4. OSTELIN [Concomitant]
  5. MAGMIN [Concomitant]
  6. RAMIPRIL [Concomitant]

REACTIONS (3)
  - Thyroiditis acute [Recovered/Resolved]
  - Diverticulitis [Unknown]
  - Gastroenteritis [None]
